FAERS Safety Report 11778263 (Version 1)
Quarter: 2015Q4

REPORT INFORMATION
  Report Type: Spontaneous
  Country: US (occurrence: US)
  Receive Date: 20151125
  Receipt Date: 20151125
  Transmission Date: 20160304
  Serious: Yes (Other)
  Sender: FDA-Public Use
  Company Number: US-INDIVIOR LIMITED-INDV-085648-2015

PATIENT
  Age: 28 Year
  Sex: Male

DRUGS (4)
  1. SUBOXONE [Suspect]
     Active Substance: BUPRENORPHINE HYDROCHLORIDE\NALOXONE HYDROCHLORIDE
     Indication: DRUG DEPENDENCE
     Dosage: 2MG, DAILY
     Route: 060
     Dates: start: 20151102
  2. HEROIN [Suspect]
     Active Substance: DIACETYLMORPHINE
     Indication: PRODUCT USED FOR UNKNOWN INDICATION
     Dosage: UNK
     Route: 065
     Dates: start: 20151102, end: 20151102
  3. BUPRENORPHINE GENERIC TAB [Suspect]
     Active Substance: BUPRENORPHINE
     Indication: DRUG DEPENDENCE
     Dosage: 4MG DAILY
     Route: 060
     Dates: start: 201506, end: 20151029
  4. XANAX [Concomitant]
     Active Substance: ALPRAZOLAM
     Indication: ANXIETY
     Dosage: 0.5MG, AS NECESSARY
     Route: 048
     Dates: start: 201506

REACTIONS (18)
  - Abnormal sensation in eye [Recovered/Resolved]
  - Product preparation error [Not Recovered/Not Resolved]
  - Insomnia [Recovered/Resolved]
  - Intentional underdose [Not Recovered/Not Resolved]
  - Drug abuse [Recovered/Resolved]
  - Feeling of body temperature change [Recovered/Resolved]
  - Chest pain [Not Recovered/Not Resolved]
  - Nausea [Recovered/Resolved]
  - Balance disorder [Not Recovered/Not Resolved]
  - Lacrimation increased [Recovered/Resolved]
  - Diarrhoea [Recovered/Resolved]
  - Heart rate increased [Not Recovered/Not Resolved]
  - Formication [Recovered/Resolved]
  - Decreased appetite [Recovered/Resolved]
  - Rhinorrhoea [Recovered/Resolved]
  - Drug dependence [Recovered/Resolved]
  - Suicidal ideation [Recovered/Resolved]
  - Dizziness [Not Recovered/Not Resolved]

NARRATIVE: CASE EVENT DATE: 201506
